FAERS Safety Report 9071766 (Version 1)
Quarter: 2013Q1

REPORT INFORMATION
  Report Type: Spontaneous
  Country: FR (occurrence: FR)
  Receive Date: 20130129
  Receipt Date: 20130129
  Transmission Date: 20140127
  Serious: Yes (Hospitalization, Other)
  Sender: FDA-Public Use
  Company Number: FR-BRISTOL-MYERS SQUIBB COMPANY-17307893

PATIENT
  Age: 56 Year
  Sex: Male

DRUGS (10)
  1. REYATAZ CAPS [Suspect]
     Indication: HIV INFECTION
     Route: 048
     Dates: end: 20121212
  2. VIREAD [Suspect]
     Indication: HIV INFECTION
     Route: 048
     Dates: end: 20121210
  3. EMTRIVA [Suspect]
     Indication: HIV INFECTION
     Dosage: CAPS
     Route: 048
     Dates: end: 20121210
  4. NORVIR [Suspect]
  5. TRUVADA [Concomitant]
     Indication: HIV INFECTION
     Dosage: 1DF=200 MG/245 MG FILM COATED TABLET
     Route: 048
     Dates: start: 20121211, end: 20121213
  6. ACUPAN [Concomitant]
  7. PHLOROGLUCINOL [Concomitant]
  8. CONTRAMAL [Concomitant]
  9. DIFFU-K [Concomitant]
  10. PARACETAMOL [Concomitant]

REACTIONS (4)
  - Cholelithiasis [Not Recovered/Not Resolved]
  - Nephrolithiasis [Not Recovered/Not Resolved]
  - Fanconi syndrome acquired [Not Recovered/Not Resolved]
  - Renal failure chronic [Not Recovered/Not Resolved]
